FAERS Safety Report 19071921 (Version 1)
Quarter: 2021Q1

REPORT INFORMATION
  Report Type: Spontaneous
  Country: LK (occurrence: LK)
  Receive Date: 20210330
  Receipt Date: 20210330
  Transmission Date: 20210420
  Serious: Yes (Life-Threatening, Hospitalization)
  Sender: FDA-Public Use
  Company Number: LK-ENDO PHARMACEUTICALS INC-2021-001748

PATIENT
  Age: 39 Year
  Sex: Male

DRUGS (8)
  1. AMITRIPTYLINE HYDROCHLORIDE. [Suspect]
     Active Substance: AMITRIPTYLINE HYDROCHLORIDE
     Indication: SLEEP DISORDER
     Dosage: 25 MG, QHS
     Route: 065
  2. AMITRIPTYLINE HYDROCHLORIDE. [Suspect]
     Active Substance: AMITRIPTYLINE HYDROCHLORIDE
     Dosage: 25?30 TABLETS PER OCCASION (625?700 MG)
     Route: 048
  3. AMITRIPTYLINE HYDROCHLORIDE. [Suspect]
     Active Substance: AMITRIPTYLINE HYDROCHLORIDE
     Dosage: UNK MG, QHS (GRADUALLY INCREASED)
     Route: 065
  4. AMITRIPTYLINE HYDROCHLORIDE. [Suspect]
     Active Substance: AMITRIPTYLINE HYDROCHLORIDE
     Dosage: 250?300 MG AT NIGHT, 100?250 MG IN DAYTIME
     Route: 065
  5. ALPRAZOLAM. [Concomitant]
     Active Substance: ALPRAZOLAM
     Indication: SLEEP DISORDER
  6. AMITRIPTYLINE HYDROCHLORIDE. [Suspect]
     Active Substance: AMITRIPTYLINE HYDROCHLORIDE
     Dosage: 75 MG, QHS
     Route: 065
  7. AMITRIPTYLINE HYDROCHLORIDE. [Suspect]
     Active Substance: AMITRIPTYLINE HYDROCHLORIDE
     Dosage: UNK MG, QHS (GRADUALLY INCREASED)
     Route: 065
  8. AMITRIPTYLINE HYDROCHLORIDE. [Suspect]
     Active Substance: AMITRIPTYLINE HYDROCHLORIDE
     Dosage: 30 TABLETS, SINGLE (DAY OF ADMISSION, AROUND 15:00)
     Route: 048

REACTIONS (9)
  - Off label use [Recovered/Resolved]
  - Delirium [Recovered/Resolved]
  - Constipation [Unknown]
  - Drug abuse [Unknown]
  - Ill-defined disorder [Unknown]
  - Toxicity to various agents [Recovered/Resolved]
  - Drug dependence [Unknown]
  - Confusional state [Recovered/Resolved]
  - Status epilepticus [Recovered/Resolved]
